FAERS Safety Report 24841355 (Version 1)
Quarter: 2025Q1

REPORT INFORMATION
  Report Type: Spontaneous
  Country: US (occurrence: US)
  Receive Date: 20250114
  Receipt Date: 20250114
  Transmission Date: 20250409
  Serious: Yes (Other)
  Sender: SPRINGWORKS THERAPEUTIC
  Company Number: US-SPRINGWORKS THERAPEUTICS-SW-002272

PATIENT
  Age: 44 Year
  Sex: Female
  Weight: 68.027 kg

DRUGS (10)
  1. OGSIVEO [Suspect]
     Active Substance: NIROGACESTAT HYDROBROMIDE
     Indication: Desmoid tumour
     Dosage: 100 MILLIGRAM, QD FOR A WEEK
     Route: 048
     Dates: start: 202409, end: 202409
  2. OGSIVEO [Suspect]
     Active Substance: NIROGACESTAT HYDROBROMIDE
     Dosage: 100 MILLIGRAM, BID
     Dates: start: 202410
  3. DOXIL [Suspect]
     Active Substance: DOXORUBICIN HYDROCHLORIDE
     Indication: Desmoid tumour
     Route: 042
     Dates: start: 202404, end: 202409
  4. UNSPECIFIED INGREDIENT [Concomitant]
     Active Substance: UNSPECIFIED INGREDIENT
     Indication: Anaphylaxis prophylaxis
  5. MEDROL [Concomitant]
     Active Substance: METHYLPREDNISOLONE
     Indication: Migraine
  6. SUMATRIPTAN [Concomitant]
     Active Substance: SUMATRIPTAN
     Indication: Migraine
  7. PANTOPRAZOLE [Concomitant]
     Active Substance: PANTOPRAZOLE
     Indication: Dyspepsia
     Dosage: UNK, BID
  8. SULINDAC [Concomitant]
     Active Substance: SULINDAC
     Indication: Rectal polyp
     Dosage: 150 MILLIGRAM, BID
  9. ERRIN [Concomitant]
     Active Substance: NORETHINDRONE
     Indication: Oral contraception
     Route: 048
  10. LEVOTHYROXINE [Concomitant]
     Active Substance: LEVOTHYROXINE
     Indication: Product used for unknown indication

REACTIONS (3)
  - Hepatic fibrosis [Unknown]
  - Hepatic iron overload [Unknown]
  - Intentional underdose [Unknown]

NARRATIVE: CASE EVENT DATE: 20240901
